FAERS Safety Report 5187663-0 (Version None)
Quarter: 2006Q4

REPORT INFORMATION
  Report Type: 
  Country: None (occurrence: None)
  Receive Date: 20061213
  Receipt Date: 20061206
  Transmission Date: 20070319
  Serious: Yes (Other)
  Sender: FDA-Public Use
  Company Number: 2006SP008045

PATIENT
  Age: 66 Year
  Sex: Male

DRUGS (3)
  1. CHLORPHENIRAMINE MALEATE [Suspect]
     Indication: NASOPHARYNGITIS
     Dosage: 1 DF; TID; PO
     Route: 048
     Dates: start: 20060901, end: 20061003
  2. SUDAFED 12 HOUR [Concomitant]
  3. WARFARIN SODIUM [Concomitant]

REACTIONS (1)
  - EPISTAXIS [None]
